FAERS Safety Report 6197858-5 (Version None)
Quarter: 2009Q2

REPORT INFORMATION
  Report Type: 
  Country: None (occurrence: None)
  Receive Date: 20090521
  Receipt Date: 20090519
  Transmission Date: 20091009
  Serious: Yes (Hospitalization)
  Sender: FDA-Public Use
  Company Number: A0784971A

PATIENT
  Age: 59 Year
  Sex: Female
  Weight: 84 kg

DRUGS (4)
  1. ALLI [Suspect]
     Route: 048
     Dates: start: 20090301, end: 20090501
  2. VITAMIN [Concomitant]
  3. LASIX [Concomitant]
  4. CRESTOR [Concomitant]

REACTIONS (8)
  - CARDIAC DISORDER [None]
  - CARDIAC FLUTTER [None]
  - DIABETES MELLITUS [None]
  - DYSPNOEA [None]
  - HEART RATE INCREASED [None]
  - HYPERTENSION [None]
  - MYOCARDIAL INFARCTION [None]
  - TACHYCARDIA [None]
